FAERS Safety Report 4354350-8 (Version None)
Quarter: 2004Q2

REPORT INFORMATION
  Report Type: 
  Country: None (occurrence: None)
  Receive Date: 20040506
  Receipt Date: 20040427
  Transmission Date: 20050107
  Serious: Yes (Life-Threatening)
  Sender: FDA-Public Use
  Company Number: US-MERCK-0404USA02331

PATIENT
  Age: 61 Year
  Sex: Female

DRUGS (8)
  1. XANAX [Concomitant]
     Route: 065
  2. PREMARIN [Concomitant]
     Route: 065
  3. LASIX [Concomitant]
     Route: 065
  4. INSULIN [Concomitant]
     Route: 065
  5. LEVOXYL [Concomitant]
     Route: 065
  6. MACROBID [Concomitant]
     Indication: CYSTITIS
     Route: 065
     Dates: start: 20040301
  7. AVANDIA [Concomitant]
     Route: 065
  8. ZOCOR [Suspect]
     Indication: BLOOD CHOLESTEROL INCREASED
     Route: 048
     Dates: start: 20031022, end: 20040301

REACTIONS (6)
  - ADVERSE EVENT [None]
  - CYSTITIS [None]
  - DISORIENTATION [None]
  - DYSURIA [None]
  - FLUID RETENTION [None]
  - TREATMENT NONCOMPLIANCE [None]
